FAERS Safety Report 17299848 (Version 1)
Quarter: 2020Q1

REPORT INFORMATION
  Report Type: Spontaneous
  Country: US (occurrence: US)
  Receive Date: 20200122
  Receipt Date: 20200122
  Transmission Date: 20200409
  Serious: No
  Sender: FDA-Public Use
  Company Number: US-ALLERGAN-1933776US

PATIENT
  Sex: Male

DRUGS (2)
  1. UNSPECIFIED DRY EYE GEL [Concomitant]
     Dosage: COUPLE DROPS
     Route: 047
  2. RESTASIS [Suspect]
     Active Substance: CYCLOSPORINE
     Indication: DRY EYE
     Dosage: 2 GTT, BID
     Route: 047
     Dates: start: 20190813

REACTIONS (3)
  - Eye irritation [Unknown]
  - Eye pain [Unknown]
  - Product storage error [Unknown]
